FAERS Safety Report 5051204-9 (Version None)
Quarter: 2006Q3

REPORT INFORMATION
  Report Type: 
  Country: None (occurrence: None)
  Receive Date: 20060714
  Receipt Date: 19980623
  Transmission Date: 20061208
  Serious: Yes (Other)
  Sender: FDA-Public Use
  Company Number: DE-BRISTOL-MYERS SQUIBB COMPANY-13432653

PATIENT
  Age: 73 Year
  Sex: Male

DRUGS (5)
  1. TAXOL [Suspect]
     Indication: OESOPHAGEAL CARCINOMA
     Dates: start: 19980326
  2. CISPLATIN [Suspect]
     Indication: OESOPHAGEAL CARCINOMA
     Dates: start: 19970501, end: 19970601
  3. ETOPOSIDE [Suspect]
     Indication: OESOPHAGEAL CARCINOMA
     Dates: start: 19970501, end: 19970601
  4. FOLIC ACID [Suspect]
     Indication: OESOPHAGEAL CARCINOMA
     Dates: start: 19970501, end: 19970601
  5. FLUOROURACIL [Suspect]
     Indication: OESOPHAGEAL CARCINOMA
     Dates: start: 19970501, end: 19970601

REACTIONS (2)
  - LEUKOPENIA [None]
  - PACKED RED BLOOD CELL TRANSFUSION [None]
